FAERS Safety Report 22189626 (Version 1)
Quarter: 2023Q2

REPORT INFORMATION
  Report Type: Spontaneous
  Country: US (occurrence: US)
  Receive Date: 20230410
  Receipt Date: 20230410
  Transmission Date: 20230722
  Serious: Yes (Hospitalization, Other)
  Sender: FDA-Public Use
  Company Number: US-CELLTRION INC.-2023US006643

PATIENT

DRUGS (1)
  1. RITUXIMAB [Suspect]
     Active Substance: RITUXIMAB
     Indication: Multiple sclerosis
     Dosage: EVERY 6 MONTHS

REACTIONS (8)
  - Immunodeficiency [Unknown]
  - Arthritis bacterial [Unknown]
  - Hypogammaglobulinaemia [Unknown]
  - Intervertebral discitis [Unknown]
  - Osteomyelitis [Unknown]
  - Ureaplasma infection [Unknown]
  - Leg amputation [Unknown]
  - Off label use [Unknown]
